FAERS Safety Report 8309419-X (Version None)
Quarter: 2012Q2

REPORT INFORMATION
  Report Type: 
  Country: None (occurrence: None)
  Receive Date: 20120424
  Receipt Date: 20120424
  Transmission Date: 20120825
  Serious: Yes (Hospitalization)
  Sender: FDA-Public Use
  Company Number: None

PATIENT
  Sex: Female

DRUGS (1)
  1. ETOPOSIDE [Suspect]
     Indication: OVARIAN CANCER
     Dosage: 2 QD PO
     Route: 048
     Dates: start: 20120223, end: 20120301

REACTIONS (5)
  - STOMATITIS [None]
  - NEUTROPENIA [None]
  - CEREBROVASCULAR ACCIDENT [None]
  - ANAEMIA [None]
  - INFECTION [None]
